FAERS Safety Report 8450399-4 (Version None)
Quarter: 2012Q2

REPORT INFORMATION
  Report Type: 
  Country: None (occurrence: None)
  Receive Date: 20120620
  Receipt Date: 20120608
  Transmission Date: 20120825
  Serious: Yes (Hospitalization, Other)
  Sender: FDA-Public Use
  Company Number: US-CELGENEUS-163-21880-12041458

PATIENT
  Sex: Female

DRUGS (37)
  1. ALLOPURINOL [Concomitant]
     Dosage: 300 MILLIGRAM
     Route: 065
  2. VIACTIV [Concomitant]
     Route: 048
  3. REVLIMID [Suspect]
     Dosage: 5 MILLIGRAM
     Route: 048
     Dates: start: 20120322
  4. DILTIAZEM HCL [Concomitant]
     Dosage: 240 MILLIGRAM
     Route: 065
  5. LASIX [Concomitant]
     Dosage: 20 MILLIGRAM
     Route: 065
  6. LASIX [Concomitant]
     Dosage: 20 MILLIGRAM
     Route: 065
     Dates: start: 20120101
  7. RED BLOOD CELLS [Concomitant]
     Dosage: 2 UNITS
     Route: 041
     Dates: start: 20120401, end: 20120401
  8. COUMADIN [Concomitant]
     Route: 065
  9. COLACE [Concomitant]
     Route: 065
  10. RES Q [Concomitant]
     Route: 048
  11. PRANDIN [Concomitant]
     Route: 065
  12. PROCRIT [Concomitant]
     Route: 065
     Dates: start: 20100818, end: 20101103
  13. HEPARIN [Concomitant]
     Route: 065
  14. ALBUTEROL NEBULIZERS [Concomitant]
     Route: 065
     Dates: start: 20120101
  15. MULTI-VITAMINS [Concomitant]
     Route: 065
  16. MULTI-VITAMINS [Concomitant]
     Route: 065
  17. METOPROLOL SUCCINATE [Concomitant]
     Dosage: 50 MILLIGRAM
     Route: 048
  18. OXYGEN [Concomitant]
     Dosage: 4 LITERS
     Route: 065
  19. LOPRESSOR [Concomitant]
     Route: 065
  20. MULTIVITAMIN [Concomitant]
     Route: 047
  21. FOLIC ACID [Concomitant]
     Dosage: 1 MILLIGRAM
     Route: 065
  22. PROCRIT [Concomitant]
     Route: 065
     Dates: start: 20111228, end: 20120301
  23. HUMALOG [Concomitant]
     Route: 065
  24. ALBUTEROL NEBULIZERS [Concomitant]
     Indication: WHEEZING
  25. ASCORBIC ACID [Concomitant]
     Route: 048
  26. FERROUS SULFATE TAB [Concomitant]
     Route: 065
  27. IRON [Concomitant]
     Dosage: 325 MILLIGRAM
     Route: 065
  28. DUONEB [Concomitant]
     Dosage: 1 GRAM
     Route: 065
     Dates: start: 20120101
  29. LANTUS [Concomitant]
     Dosage: 24 IU (INTERNATIONAL UNIT)
     Route: 065
  30. PROCRIT [Concomitant]
     Route: 065
     Dates: start: 20110101, end: 20110915
  31. SENOKOT [Concomitant]
     Route: 065
  32. CO Q 10 [Concomitant]
     Route: 065
  33. LUTEIN [Concomitant]
     Route: 065
  34. BENADRYL [Concomitant]
     Route: 065
  35. OMEPRAZOLE [Concomitant]
     Route: 065
  36. CEFTRIAXONE [Concomitant]
     Dosage: 1 GRAM
     Route: 065
     Dates: start: 20120101
  37. RES Q [Concomitant]
     Dosage: 1250
     Route: 065

REACTIONS (10)
  - DYSPNOEA [None]
  - DIABETES MELLITUS [None]
  - ANAEMIA HAEMOLYTIC AUTOIMMUNE [None]
  - LOBAR PNEUMONIA [None]
  - ATRIAL FIBRILLATION [None]
  - HYPERTENSION [None]
  - ELECTROCARDIOGRAM QT PROLONGED [None]
  - CARDIAC FAILURE CONGESTIVE [None]
  - FULL BLOOD COUNT DECREASED [None]
  - BRONCHITIS [None]
